FAERS Safety Report 9532651 (Version 2)
Quarter: 2013Q4

REPORT INFORMATION
  Report Type: Report from Study
  Country: US (occurrence: US)
  Receive Date: 20130918
  Receipt Date: 20131111
  Transmission Date: 20140711
  Serious: Yes (Hospitalization, Other)
  Sender: FDA-Public Use
  Company Number: US-BAYER-2013-112023

PATIENT
  Sex: Female

DRUGS (3)
  1. SORAFENIB (RAF KINASE INHIBITOR) [Suspect]
     Indication: ACUTE MYELOID LEUKAEMIA
     Dosage: 800 MG DAILY
     Route: 048
  2. FILGRASTIM [Suspect]
     Indication: ACUTE MYELOID LEUKAEMIA
     Dosage: 10 MCG/KG
  3. PLERIXAFOR [Suspect]
     Indication: ACUTE MYELOID LEUKAEMIA
     Dosage: 240 MCG/KG

REACTIONS (6)
  - Febrile neutropenia [Recovered/Resolved]
  - Pyrexia [Recovered/Resolved]
  - Chills [Recovered/Resolved]
  - Metastases to meninges [None]
  - Diarrhoea [None]
  - Syncope [Recovered/Resolved]
